FAERS Safety Report 6727012-7 (Version None)
Quarter: 2010Q2

REPORT INFORMATION
  Report Type: 
  Country: None (occurrence: None)
  Receive Date: 20100517
  Receipt Date: 20100503
  Transmission Date: 20101027
  Serious: Yes (Hospitalization, Other)
  Sender: FDA-Public Use
  Company Number: US-JNJFOC-20100501453

PATIENT
  Sex: Female

DRUGS (3)
  1. STELARA [Suspect]
     Indication: PSORIASIS
     Route: 058
  2. STELARA [Suspect]
     Route: 058
  3. VOLTAREN [Concomitant]
     Indication: PAIN

REACTIONS (7)
  - ANXIETY [None]
  - CENTRAL NERVOUS SYSTEM LESION [None]
  - DEPRESSION [None]
  - DIPLOPIA [None]
  - HEADACHE [None]
  - MOTOR DYSFUNCTION [None]
  - VISION BLURRED [None]
